FAERS Safety Report 6491114-3 (Version None)
Quarter: 2009Q4

REPORT INFORMATION
  Report Type: 
  Country: None (occurrence: None)
  Receive Date: 20091211
  Receipt Date: 20091202
  Transmission Date: 20100525
  Serious: Yes (Hospitalization, Other)
  Sender: FDA-Public Use
  Company Number: US-ABBOTT-09P-163-0611737-00

PATIENT
  Sex: Female
  Weight: 108.96 kg

DRUGS (18)
  1. AZMACORT [Suspect]
     Indication: ASTHMA
     Route: 055
     Dates: start: 20070101
  2. AZMACORT [Suspect]
     Indication: HYPERSENSITIVITY
  3. COMBIVENT [Concomitant]
     Indication: ASTHMA
     Route: 055
  4. VERAMYST [Concomitant]
     Indication: ASTHMA
     Route: 045
  5. PREDNISONE [Concomitant]
     Indication: DRUG USE FOR UNKNOWN INDICATION
     Route: 048
  6. ALLEGRA [Concomitant]
     Indication: HYPERSENSITIVITY
     Route: 048
  7. HYDROCHLOROTHIAZIDE [Concomitant]
     Indication: HYPERTENSION
     Route: 048
  8. PREVACID SOLTABS [Concomitant]
     Indication: GASTROOESOPHAGEAL REFLUX DISEASE
     Route: 048
  9. LIDODERM [Concomitant]
     Indication: BACK PAIN
     Route: 061
  10. VALIUM [Concomitant]
     Indication: ANXIETY
     Route: 048
  11. LASIX [Concomitant]
     Indication: FLUID RETENTION
     Route: 048
  12. LOVAZA [Concomitant]
     Indication: MEDICAL DIET
     Route: 048
  13. LECITHIN FLAKES [Concomitant]
     Indication: MEDICAL DIET
     Route: 048
  14. MILK THISTLE [Concomitant]
     Indication: PHYTOTHERAPY
     Route: 048
  15. MILK THISTLE [Concomitant]
     Indication: HEPATIC STEATOSIS
  16. VITAMIN A [Concomitant]
     Indication: VITAMIN SUPPLEMENTATION
     Route: 048
  17. VITAMIN D [Concomitant]
     Indication: VITAMIN SUPPLEMENTATION
     Dosage: UNREPORTED STRENGTH
     Route: 048
  18. MAGNESIUM [Concomitant]
     Indication: MINERAL SUPPLEMENTATION
     Route: 048

REACTIONS (6)
  - BRONCHITIS [None]
  - CHEST PAIN [None]
  - CHOLELITHIASIS OBSTRUCTIVE [None]
  - MALAISE [None]
  - PANCREATITIS [None]
  - WHEEZING [None]
